FAERS Safety Report 20099102 (Version 1)
Quarter: 2021Q4

REPORT INFORMATION
  Report Type: Spontaneous
  Country: GB (occurrence: GB)
  Receive Date: 20211122
  Receipt Date: 20211122
  Transmission Date: 20220303
  Serious: Yes (Other)
  Sender: FDA-Public Use
  Company Number: GB-MYLANLABS-2021M1085932

PATIENT
  Sex: Male

DRUGS (1)
  1. FLUOROURACIL [Suspect]
     Active Substance: FLUOROURACIL
     Indication: Photodermatosis
     Dosage: ONCE A DAY, APPLIED TO AFFECTED AREA - TOP OF THE HEAD
     Dates: start: 20211012

REACTIONS (4)
  - Haemorrhage [Not Recovered/Not Resolved]
  - Dandruff [Not Recovered/Not Resolved]
  - Skin lesion [Not Recovered/Not Resolved]
  - Pain [Not Recovered/Not Resolved]
